FAERS Safety Report 21391960 (Version 3)
Quarter: 2022Q4

REPORT INFORMATION
  Report Type: Spontaneous
  Country: AU (occurrence: AU)
  Receive Date: 20220929
  Receipt Date: 20221011
  Transmission Date: 20230113
  Serious: Yes (Disabling)
  Sender: FDA-Public Use
  Company Number: AU-KOREA IPSEN Pharma-2022-26562

PATIENT
  Sex: Female

DRUGS (7)
  1. DYSPORT [Suspect]
     Active Substance: ABOBOTULINUMTOXINA
     Indication: Skin wrinkling
     Dosage: 115 IU
     Route: 030
     Dates: start: 20220902, end: 20220902
  2. DYSPORT [Suspect]
     Active Substance: ABOBOTULINUMTOXINA
     Indication: Skin wrinkling
  3. DYSPORT [Suspect]
     Active Substance: ABOBOTULINUMTOXINA
     Indication: Skin wrinkling
  4. DYSPORT [Suspect]
     Active Substance: ABOBOTULINUMTOXINA
     Indication: Skin wrinkling
  5. DYSPORT [Suspect]
     Active Substance: ABOBOTULINUMTOXINA
     Indication: Off label use
  6. BOTOX [Concomitant]
     Active Substance: ONABOTULINUMTOXINA
     Indication: Skin wrinkling
     Dates: start: 20220405, end: 20220405
  7. BOTOX [Concomitant]
     Active Substance: ONABOTULINUMTOXINA
     Indication: Bruxism
     Dosage: 80 UNITS
     Dates: start: 20220903, end: 20220903

REACTIONS (4)
  - Facial paralysis [Recovering/Resolving]
  - Therapeutic product effect increased [Unknown]
  - Product preparation issue [Unknown]
  - Off label use [Unknown]

NARRATIVE: CASE EVENT DATE: 20220901
